FAERS Safety Report 25941801 (Version 1)
Quarter: 2025Q4

REPORT INFORMATION
  Report Type: Spontaneous
  Country: EU (occurrence: EU)
  Receive Date: 20251020
  Receipt Date: 20251020
  Transmission Date: 20260118
  Serious: Yes (Hospitalization)
  Sender: NOVARTIS
  Company Number: None

PATIENT
  Age: 83 Year
  Sex: Female
  Weight: 47 kg

DRUGS (1)
  1. ELTROMBOPAG OLAMINE [Suspect]
     Active Substance: ELTROMBOPAG OLAMINE
     Indication: Bone marrow failure
     Dosage: UNK (50 MG/J, PUIS 150 MG/J ? PARTIR DU 21/05/2020, 225 MG MENTIONN? EN 11/2023 , BAISSE ? 150 MG/J
     Route: 048
     Dates: start: 20200501, end: 20240404

REACTIONS (2)
  - Mixed liver injury [Recovering/Resolving]
  - Hepatitis acute [Recovering/Resolving]

NARRATIVE: CASE EVENT DATE: 20240213
